FAERS Safety Report 6248045-3 (Version None)
Quarter: 2009Q2

REPORT INFORMATION
  Report Type: 
  Country: None (occurrence: None)
  Receive Date: 20090626
  Receipt Date: 20090619
  Transmission Date: 20091009
  Serious: Yes (Death, Hospitalization)
  Sender: FDA-Public Use
  Company Number: FR-BAUSCH-2009BL003056

PATIENT
  Age: 78 Year
  Sex: Male

DRUGS (1)
  1. CARTEOL 2% COLLYRE [Suspect]
     Indication: INTRAOCULAR PRESSURE INCREASED
     Route: 047
     Dates: start: 20090211, end: 20090213

REACTIONS (6)
  - ACUTE PULMONARY OEDEMA [None]
  - BRADYCARDIA [None]
  - CARDIAC PROCEDURE COMPLICATION [None]
  - CORONARY ARTERY OCCLUSION [None]
  - DYSPNOEA EXERTIONAL [None]
  - FATIGUE [None]
